FAERS Safety Report 7964534-5 (Version None)
Quarter: 2011Q4

REPORT INFORMATION
  Report Type: 
  Country: None (occurrence: None)
  Receive Date: 20111208
  Receipt Date: 20111205
  Transmission Date: 20120403
  Serious: Yes (Death, Life-Threatening, Other)
  Sender: FDA-Public Use
  Company Number: PHHY2011ES105981

PATIENT
  Sex: Male
  Weight: 0.456 kg

DRUGS (1)
  1. TRILEPTAL [Suspect]
     Dosage: MATERNAL DOSE: 300MG /12H
     Route: 064

REACTIONS (13)
  - SEPTIC SHOCK [None]
  - PREMATURE BABY [None]
  - THROMBOCYTOPENIA [None]
  - FOETAL GROWTH RESTRICTION [None]
  - FOETAL MALNUTRITION [None]
  - ACIDOSIS [None]
  - LOW BIRTH WEIGHT BABY [None]
  - RESPIRATORY DISTRESS [None]
  - ANAEMIA [None]
  - HEPATITIS CHOLESTATIC [None]
  - PSEUDOMONAL SEPSIS [None]
  - FOETAL EXPOSURE DURING PREGNANCY [None]
  - NEONATAL ASPHYXIA [None]
